FAERS Safety Report 22072786 (Version 2)
Quarter: 2023Q1

REPORT INFORMATION
  Report Type: Spontaneous
  Country: US (occurrence: US)
  Receive Date: 20230308
  Receipt Date: 20230331
  Transmission Date: 20230417
  Serious: No
  Sender: FDA-Public Use
  Company Number: US-GLAXOSMITHKLINE-US2023AMR034493

PATIENT
  Sex: Female
  Weight: 63 kg

DRUGS (1)
  1. ZEJULA [Suspect]
     Active Substance: NIRAPARIB
     Indication: Ovarian cancer
     Dosage: 200 MG, QD
     Route: 048
     Dates: start: 20230220

REACTIONS (10)
  - Constipation [Unknown]
  - Nausea [Unknown]
  - Vomiting [Not Recovered/Not Resolved]
  - Epistaxis [Unknown]
  - Cough [Unknown]
  - Gastrointestinal motility disorder [Unknown]
  - Faeces hard [Unknown]
  - Ill-defined disorder [Unknown]
  - Influenza like illness [Unknown]
  - Product dose omission issue [Unknown]
